FAERS Safety Report 8016080-0 (Version None)
Quarter: 2011Q4

REPORT INFORMATION
  Report Type: 
  Country: None (occurrence: None)
  Receive Date: 20111223
  Receipt Date: 20111213
  Transmission Date: 20120403
  Serious: Yes (Life-Threatening, Hospitalization)
  Sender: FDA-Public Use
  Company Number: DSM-2011-01370

PATIENT
  Age: 41 Year
  Sex: Female

DRUGS (6)
  1. ETHYLALCOHOL (ETHANOL) [Concomitant]
  2. IMOVANE (ZOPICLONE) (7.5 MILLIGRAM, TABLET) (ZOPICLONE) [Suspect]
     Indication: PRODUCT USED FOR UNKNOWN INDICATION
     Dosage: 45 MG 1 IN 1 D, ORAL
     Route: 048
     Dates: start: 20111020, end: 20111020
  3. OXAZEPAM [Concomitant]
  4. AMLODIPINE BESYLATE AND OLMESARTAN MEDOXOMIL [Suspect]
     Indication: PRODUCT USED FOR UNKNOWN INDICATION
     Dosage: 2800/350 MG (70 DOSAGE FORMS, 1 IN 1 D), ORAL
     Route: 048
     Dates: start: 20111020, end: 20111020
  5. URBANYL (CLOBAZAM) [Concomitant]
  6. PAROXETINE HYDROCHLORIDE [Concomitant]

REACTIONS (9)
  - VOMITING [None]
  - TOXICITY TO VARIOUS AGENTS [None]
  - HYPOCALCAEMIA [None]
  - HYPOTENSION [None]
  - HYPONATRAEMIA [None]
  - MULTIPLE DRUG OVERDOSE INTENTIONAL [None]
  - METABOLIC DISORDER [None]
  - HYPERKALAEMIA [None]
  - RENAL FAILURE [None]
